FAERS Safety Report 23998213 (Version 1)
Quarter: 2024Q2

REPORT INFORMATION
  Report Type: Report from Study
  Country: BR (occurrence: BR)
  Receive Date: 20240621
  Receipt Date: 20240621
  Transmission Date: 20240716
  Serious: Yes (Other)
  Sender: FDA-Public Use
  Company Number: BR-JNJFOC-20240643342

PATIENT
  Age: 72 Year
  Sex: Female
  Weight: 80 kg

DRUGS (1)
  1. REMICADE [Suspect]
     Active Substance: INFLIXIMAB
     Indication: Ankylosing spondylitis
     Route: 041
     Dates: start: 20210331, end: 202203

REACTIONS (6)
  - Antiphospholipid syndrome [Unknown]
  - Rheumatoid arthritis [Unknown]
  - Pneumonia [Unknown]
  - COVID-19 [Unknown]
  - Osteoarthritis [Unknown]
  - Weight increased [Unknown]
